FAERS Safety Report 10133642 (Version 2)
Quarter: 2014Q2

REPORT INFORMATION
  Report Type: Spontaneous
  Country: US (occurrence: US)
  Receive Date: 20140428
  Receipt Date: 20140606
  Transmission Date: 20141212
  Serious: Yes (Other)
  Sender: FDA-Public Use
  Company Number: US-PFIZER INC-2014116115

PATIENT
  Sex: 0

DRUGS (2)
  1. XELJANZ [Suspect]
     Dosage: UNK
  2. METHOTREXATE [Suspect]
     Dosage: UNK

REACTIONS (2)
  - Gastrointestinal haemorrhage [Unknown]
  - Thrombocytopenia [Recovered/Resolved]
